FAERS Safety Report 9688404 (Version 1)
Quarter: 2013Q4

REPORT INFORMATION
  Report Type: Spontaneous
  Country: US (occurrence: None)
  Receive Date: 20131112
  Receipt Date: 20131112
  Transmission Date: 20140711
  Serious: Yes (Other)
  Sender: FDA-Public Use
  Company Number: 2013US001827

PATIENT
  Age: 68 Year
  Sex: Male
  Weight: 76.3 kg

DRUGS (14)
  1. PONATINIB [Suspect]
     Indication: CHRONIC MYELOID LEUKAEMIA
     Route: 048
     Dates: start: 20090413
  2. PONATINIB [Suspect]
     Indication: HAEMATOLOGICAL MALIGNANCY
     Route: 048
     Dates: start: 20090413
  3. ADALAT (NIFEDIPINE) [Concomitant]
  4. CIALIS (TADALAFIL) [Concomitant]
  5. DIOVAN (VALSARTAN) [Concomitant]
  6. EUTHYROX (LEVOTHYROXINE SODIUM)(TABLET)(LEVOTHYROXINE SODIUM) [Concomitant]
  7. ESOMEPRAZOLE (ESOMEPRAZOLE) [Concomitant]
  8. FOLIC ACID (FOLIC ACID) [Concomitant]
  9. GLUCOPHAGE (METFORMIN HYDROCHLORIDE) [Concomitant]
  10. HIPERLIPEN (CIPROFIBRATE) [Concomitant]
  11. LEXAPRO (ESCITALOPRAM OXALATE) [Concomitant]
  12. LIPITOR (ATORVASTATIN CALCIUM) [Concomitant]
  13. ZETIA (EZETIMIBE) [Concomitant]
  14. ZYLORIC (ALLOPURINOL) [Concomitant]

REACTIONS (3)
  - Glomerulosclerosis [None]
  - Arteriosclerosis [None]
  - Hepatic steatosis [None]
